FAERS Safety Report 5385731-1 (Version None)
Quarter: 2007Q3

REPORT INFORMATION
  Report Type: 
  Country: None (occurrence: None)
  Receive Date: 20070712
  Receipt Date: 20070630
  Transmission Date: 20080115
  Serious: Yes (Other)
  Sender: FDA-Public Use
  Company Number: US-PFIZER INC-2007046071

PATIENT
  Sex: Female
  Weight: 90.7 kg

DRUGS (33)
  1. CHANTIX [Suspect]
     Indication: SMOKING CESSATION THERAPY
     Route: 048
  2. VISTARIL [Suspect]
  3. BENADRYL [Suspect]
  4. PREDNISONE [Suspect]
  5. TETRACYCLINE [Suspect]
  6. EVISTA [Concomitant]
  7. LEVOTHROID [Concomitant]
  8. ZYRTEC [Concomitant]
  9. GALENIC /DOCUSATE/SENNA/ [Concomitant]
  10. TRIOBE [Concomitant]
  11. KLOR-CON [Concomitant]
  12. PROPRANOLOL [Concomitant]
  13. PROTONIX [Concomitant]
  14. HYDROCHLOROTHIAZIDE [Concomitant]
  15. THEOPHYLLINE [Concomitant]
  16. ETODOLAC [Concomitant]
  17. TIZANIDINE HCL [Concomitant]
  18. EFFEXOR [Concomitant]
  19. MIRTAZAPINE [Concomitant]
  20. ZOLPIDEM TARTRATE [Concomitant]
  21. KLONOPIN [Concomitant]
  22. NEURONTIN [Concomitant]
  23. PROVENTIL INHALER [Concomitant]
  24. DUONEB [Concomitant]
  25. PROMETHAZINE [Concomitant]
  26. SYNTHROID [Concomitant]
  27. ADVAIR DISKUS 100/50 [Concomitant]
  28. MUCINEX [Concomitant]
  29. LYRICA [Concomitant]
  30. TRAZODONE HCL [Concomitant]
  31. ULTRAM [Concomitant]
  32. FLEXERIL [Concomitant]
  33. SPIRIVA [Concomitant]

REACTIONS (11)
  - ABDOMINAL DISTENSION [None]
  - ABNORMAL DREAMS [None]
  - BACK PAIN [None]
  - DRUG HYPERSENSITIVITY [None]
  - DYSPNOEA [None]
  - FATIGUE [None]
  - INSOMNIA [None]
  - MEDICATION ERROR [None]
  - NAUSEA [None]
  - NEURALGIA [None]
  - WEIGHT INCREASED [None]
